FAERS Safety Report 19768529 (Version 1)
Quarter: 2021Q3

REPORT INFORMATION
  Report Type: Spontaneous
  Country: US (occurrence: US)
  Receive Date: 20210826
  Receipt Date: 20210826
  Transmission Date: 20211014
  Serious: No
  Sender: FDA-Public Use
  Company Number: None

PATIENT
  Age: 71 Year
  Sex: Male

DRUGS (9)
  1. K?TAB [Concomitant]
     Active Substance: POTASSIUM CHLORIDE
  2. STARTED VACCINATIONS 8 MONTHS POST SUTO?SCT FOR MYELOMA ON 4/21/21 [Concomitant]
  3. REVLIMID [Suspect]
     Active Substance: LENALIDOMIDE
     Indication: PLASMA CELL MYELOMA
     Dosage: DAILY FOR 21 DAYS OF 28 DAYS OF MONTH
     Route: 048
     Dates: start: 20200225, end: 20210825
  4. PFIZER COVID VACCINATION [Concomitant]
  5. ACYCLOVIR. [Concomitant]
     Active Substance: ACYCLOVIR
  6. THYROXINE [Concomitant]
     Active Substance: LEVOTHYROXINE
  7. ATORVASTATIN [Concomitant]
     Active Substance: ATORVASTATIN
  8. XARELTO [Concomitant]
     Active Substance: RIVAROXABAN
  9. AMLODIPINE [Concomitant]
     Active Substance: AMLODIPINE BESYLATE

REACTIONS (5)
  - Plasma cell myeloma [None]
  - Dizziness [None]
  - HER2 positive breast cancer [None]
  - Neuropathy peripheral [None]
  - Cytogenetic abnormality [None]

NARRATIVE: CASE EVENT DATE: 20210825
